FAERS Safety Report 18320061 (Version 6)
Quarter: 2022Q4

REPORT INFORMATION
  Report Type: Report from Study
  Country: CA (occurrence: CA)
  Receive Date: 20200928
  Receipt Date: 20221129
  Transmission Date: 20230113
  Serious: Yes (Other)
  Sender: FDA-Public Use
  Company Number: PHHY2018CA188698

PATIENT
  Age: 67 Year
  Sex: Female

DRUGS (3)
  1. SANDOSTATIN LAR DEPOT [Suspect]
     Active Substance: OCTREOTIDE ACETATE
     Indication: Carcinoid tumour
     Dosage: 20 MG, Q2W (EVERY 2 WEEKS)
     Route: 030
     Dates: start: 20181002
  2. SANDOSTATIN LAR DEPOT [Suspect]
     Active Substance: OCTREOTIDE ACETATE
     Dosage: 20 MG, Q4W (MONTHLY)
     Route: 030
     Dates: start: 20181002
  3. SANDOSTATIN LAR DEPOT [Suspect]
     Active Substance: OCTREOTIDE ACETATE
     Dosage: 20 MG, Q2W
     Route: 065
     Dates: start: 20210608

REACTIONS (14)
  - Pneumonia [Unknown]
  - Dyspnoea [Unknown]
  - Upper respiratory tract infection [Recovered/Resolved]
  - Cough [Unknown]
  - Gastrointestinal disorder [Recovered/Resolved]
  - Insomnia [Unknown]
  - Malaise [Unknown]
  - Body temperature decreased [Unknown]
  - Anal incontinence [Unknown]
  - Nausea [Recovered/Resolved]
  - Dyspepsia [Unknown]
  - Diarrhoea [Unknown]
  - Cholelithiasis [Unknown]
  - Inappropriate schedule of product administration [Unknown]

NARRATIVE: CASE EVENT DATE: 20181210
